FAERS Safety Report 20116101 (Version 1)
Quarter: 2021Q4

REPORT INFORMATION
  Report Type: Spontaneous
  Country: AU (occurrence: AU)
  Receive Date: 20211126
  Receipt Date: 20211126
  Transmission Date: 20220303
  Serious: Yes (Other)
  Sender: FDA-Public Use
  Company Number: AU-ABBVIE-21K-008-4176816-00

PATIENT
  Sex: Female

DRUGS (2)
  1. VALPROATE SODIUM [Suspect]
     Active Substance: VALPROATE SODIUM
     Indication: Product used for unknown indication
     Route: 065
  2. TILADE [Suspect]
     Active Substance: NEDOCROMIL SODIUM
     Indication: Product used for unknown indication
     Route: 065

REACTIONS (2)
  - Loss of personal independence in daily activities [Unknown]
  - Product availability issue [Unknown]
